FAERS Safety Report 7777229-8 (Version None)
Quarter: 2011Q3

REPORT INFORMATION
  Report Type: 
  Country: None (occurrence: None)
  Receive Date: 20110926
  Receipt Date: 20110916
  Transmission Date: 20111222
  Serious: Yes (Hospitalization, Other)
  Sender: FDA-Public Use
  Company Number: PHEH2011US04494

PATIENT
  Sex: Female

DRUGS (5)
  1. GLIMEPIRIDE [Suspect]
     Indication: DIABETES MELLITUS
  2. STARLIX [Suspect]
     Indication: DIABETES MELLITUS
  3. JANUVIA [Suspect]
  4. ACTOS [Suspect]
     Dosage: 1 DF, QD
     Dates: end: 20110301
  5. METFORMIN HCL [Suspect]
     Indication: DIABETES MELLITUS

REACTIONS (4)
  - DIABETES MELLITUS INADEQUATE CONTROL [None]
  - BLOOD GLUCOSE INCREASED [None]
  - RENAL INJURY [None]
  - OEDEMA PERIPHERAL [None]
